FAERS Safety Report 6152026-8 (Version None)
Quarter: 2009Q2

REPORT INFORMATION
  Report Type: 
  Country: None (occurrence: None)
  Receive Date: 20090410
  Receipt Date: 20090402
  Transmission Date: 20091009
  Serious: Yes (Hospitalization, Other)
  Sender: FDA-Public Use
  Company Number: US-ABBOTT-09P-163-0566045-00

PATIENT
  Sex: Female
  Weight: 81.72 kg

DRUGS (9)
  1. HUMIRA [Suspect]
     Indication: RHEUMATOID ARTHRITIS
     Route: 058
     Dates: start: 20080901, end: 20081201
  2. HUMIRA [Suspect]
     Route: 058
     Dates: start: 20081201
  3. ZOLOFT [Concomitant]
     Indication: DEPRESSION
  4. SYNTHROID [Concomitant]
     Indication: HYPOTHYROIDISM
  5. SINGULAIR [Concomitant]
     Indication: BRONCHIAL HYPERREACTIVITY
  6. ADVAIR HFA [Concomitant]
     Indication: BRONCHIAL HYPERREACTIVITY
  7. CARDURA [Concomitant]
     Indication: HYPERTENSION
  8. PRILOSEC [Concomitant]
     Indication: GASTROOESOPHAGEAL REFLUX DISEASE
  9. METHYLPREDNISOLONE 4MG TAB [Concomitant]
     Indication: RHEUMATOID ARTHRITIS

REACTIONS (3)
  - DRUG INEFFECTIVE [None]
  - HEADACHE [None]
  - PAIN [None]
